FAERS Safety Report 8683095 (Version 2)
Quarter: 2013Q4

REPORT INFORMATION
  Report Type: Spontaneous
  Country: US (occurrence: US)
  Receive Date: 20120725
  Receipt Date: 20131101
  Transmission Date: 20140711
  Serious: No
  Sender: FDA-Public Use
  Company Number: US-009507513-1207USA007618

PATIENT
  Age: 73 Year
  Sex: Female

DRUGS (4)
  1. SINGULAIR [Suspect]
     Indication: ASTHMA
     Dosage: 10 MG, BID
     Route: 048
     Dates: start: 20120706, end: 201207
  2. SINGULAIR [Suspect]
     Dosage: 10 UNK, UNK
     Route: 048
     Dates: start: 201207, end: 20120716
  3. FOLIC ACID [Concomitant]
  4. CYANOCOBALAMIN [Concomitant]

REACTIONS (9)
  - Weight increased [Recovering/Resolving]
  - Contusion [Recovering/Resolving]
  - Abdominal distension [Recovering/Resolving]
  - Paraesthesia [Recovering/Resolving]
  - Diarrhoea [Recovering/Resolving]
  - Energy increased [Recovering/Resolving]
  - Gastrointestinal disorder [Recovering/Resolving]
  - Personality disorder [Recovering/Resolving]
  - Sensitivity of teeth [Recovering/Resolving]
